FAERS Safety Report 7051325-5 (Version None)
Quarter: 2010Q4

REPORT INFORMATION
  Report Type: 
  Country: None (occurrence: None)
  Receive Date: 20101012
  Receipt Date: 20101005
  Transmission Date: 20110411
  Serious: Yes (Hospitalization)
  Sender: FDA-Public Use
  Company Number: 016141

PATIENT
  Age: 44 Year
  Sex: Male

DRUGS (1)
  1. XYZAL [Suspect]
     Indication: MULTIPLE ALLERGIES
     Dosage: (10 MG QD, 2 DOSES.)
     Dates: start: 20100701, end: 20100701

REACTIONS (3)
  - ATRIOVENTRICULAR BLOCK [None]
  - HEPATIC FAILURE [None]
  - RENAL FAILURE [None]
